FAERS Safety Report 24918084 (Version 1)
Quarter: 2025Q1

REPORT INFORMATION
  Report Type: Report from Study
  Country: US (occurrence: US)
  Receive Date: 20250203
  Receipt Date: 20250203
  Transmission Date: 20250408
  Serious: Yes (Other)
  Sender: PFIZER
  Company Number: US-PFIZER INC-202500020185

PATIENT
  Age: 85 Year
  Sex: Female
  Weight: 52.2 kg

DRUGS (4)
  1. VYNDAMAX [Suspect]
     Active Substance: TAFAMIDIS
     Dosage: 61 MG PO(PER ORAL) DAILY
     Route: 048
     Dates: start: 20230821
  2. POTASSIUM [Concomitant]
     Active Substance: POTASSIUM
  3. FUROSEMIDE [Concomitant]
     Active Substance: FUROSEMIDE
  4. CAFFEINE [Concomitant]
     Active Substance: CAFFEINE

REACTIONS (4)
  - Herpes ophthalmic [Not Recovered/Not Resolved]
  - Oral herpes [Not Recovered/Not Resolved]
  - Fatigue [Not Recovered/Not Resolved]
  - Oedema [Not Recovered/Not Resolved]
